FAERS Safety Report 14321870 (Version 4)
Quarter: 2020Q2

REPORT INFORMATION
  Report Type: Report from Study
  Country: CN (occurrence: CN)
  Receive Date: 20171225
  Receipt Date: 20200507
  Transmission Date: 20200713
  Serious: Yes (Other)
  Sender: FDA-Public Use
  Company Number: CN-ROCHE-2038603

PATIENT
  Age: 43 Year
  Sex: Female
  Weight: 48 kg

DRUGS (2)
  1. AVASTIN [Suspect]
     Active Substance: BEVACIZUMAB
     Indication: RECTAL CANCER
     Route: 041
     Dates: start: 20161010, end: 20190409
  2. AVASTIN [Suspect]
     Active Substance: BEVACIZUMAB
     Route: 041
     Dates: end: 20200318

REACTIONS (8)
  - Jaundice [Unknown]
  - Platelet count decreased [Unknown]
  - Transaminases increased [Unknown]
  - Liver injury [Unknown]
  - Hepatic neoplasm [Unknown]
  - Pyrexia [Unknown]
  - Nasopharyngitis [Unknown]
  - Bile duct obstruction [Unknown]

NARRATIVE: CASE EVENT DATE: 20190409
